FAERS Safety Report 5891603-6 (Version None)
Quarter: 2008Q3

REPORT INFORMATION
  Report Type: 
  Country: None (occurrence: None)
  Receive Date: 20080922
  Receipt Date: 20080910
  Transmission Date: 20090109
  Serious: Yes (Life-Threatening)
  Sender: FDA-Public Use
  Company Number: AU-ROCHE-582651

PATIENT
  Sex: Male
  Weight: 8 kg

DRUGS (1)
  1. ROCALTROL [Suspect]
     Indication: ILL-DEFINED DISORDER
     Dosage: FORM: GEL CAPSULE
     Route: 048
     Dates: start: 20080821, end: 20080821

REACTIONS (5)
  - ANAPHYLACTIC REACTION [None]
  - DIARRHOEA [None]
  - FLUSHING [None]
  - STRIDOR [None]
  - VOMITING [None]
